FAERS Safety Report 23615906 (Version 1)
Quarter: 2024Q1

REPORT INFORMATION
  Report Type: Spontaneous
  Country: US (occurrence: US)
  Receive Date: 20240311
  Receipt Date: 20240311
  Transmission Date: 20240410
  Serious: Yes (Hospitalization)
  Sender: FDA-Public Use
  Company Number: US-JNJFOC-20230956764

PATIENT
  Age: 7 Decade
  Sex: Male

DRUGS (1)
  1. NEOSPORIN [Suspect]
     Active Substance: BACITRACIN ZINC\NEOMYCIN SULFATE\POLYMYXIN B SULFATE
     Indication: Skin abrasion
     Route: 061
     Dates: start: 2023

REACTIONS (4)
  - Dysbiosis [Unknown]
  - Neuromyopathy [Unknown]
  - Nervous system disorder [Unknown]
  - Behaviour disorder [Unknown]

NARRATIVE: CASE EVENT DATE: 20230101
